FAERS Safety Report 9081329 (Version 1)
Quarter: 2013Q1

REPORT INFORMATION
  Report Type: Report from Study
  Country: US (occurrence: US)
  Receive Date: 20130130
  Receipt Date: 20130130
  Transmission Date: 20140127
  Serious: No
  Sender: FDA-Public Use
  Company Number: US-ABBOTT-12P-163-0964031-00

PATIENT
  Sex: Female
  Weight: 61.29 kg

DRUGS (4)
  1. HUMIRA 40 MG/0.8 ML PEN [Suspect]
     Indication: PSORIASIS
     Dates: start: 201003, end: 201011
  2. HUMIRA 40 MG/0.8 ML PEN [Suspect]
     Dates: start: 20120815
  3. DEPOPROVERA [Concomitant]
     Indication: CONTRACEPTION
     Dates: start: 201205
  4. TYLENOL [Concomitant]
     Indication: PRODUCT USED FOR UNKNOWN INDICATION
     Route: 048

REACTIONS (2)
  - Injection site pain [Recovered/Resolved]
  - Nasopharyngitis [Recovered/Resolved]
